FAERS Safety Report 19426364 (Version 1)
Quarter: 2021Q2

REPORT INFORMATION
  Report Type: Spontaneous
  Country: US (occurrence: US)
  Receive Date: 20210617
  Receipt Date: 20210617
  Transmission Date: 20210717
  Serious: Yes (Hospitalization, Other)
  Sender: FDA-Public Use
  Company Number: US-AUROBINDO-AUR-APL-2021-025162

PATIENT
  Age: 23 Year
  Sex: Male

DRUGS (1)
  1. IBUPROFEN TABLETS [Suspect]
     Active Substance: IBUPROFEN
     Indication: PRODUCT USED FOR UNKNOWN INDICATION
     Dosage: 600 MILLIGRAM (30 G)
     Route: 065

REACTIONS (8)
  - Vomiting [Recovered/Resolved]
  - Hypoxia [Recovered/Resolved]
  - Acute kidney injury [Recovered/Resolved]
  - Overdose [Unknown]
  - Metabolic acidosis [Recovered/Resolved]
  - Nausea [Recovered/Resolved]
  - Acute respiratory distress syndrome [Recovered/Resolved]
  - Abdominal pain [Recovered/Resolved]
